FAERS Safety Report 14944509 (Version 2)
Quarter: 2018Q2

REPORT INFORMATION
  Report Type: Report from Study
  Country: None (occurrence: CH)
  Receive Date: 20180529
  Receipt Date: 20180619
  Transmission Date: 20180711
  Serious: Yes (Hospitalization)
  Sender: FDA-Public Use
  Company Number: CH-ABBVIE-18K-151-2369482-00

PATIENT
  Age: 65 Year
  Sex: Male

DRUGS (3)
  1. DUODOPA [Suspect]
     Active Substance: CARBIDOPA\LEVODOPA
     Indication: PARKINSON^S DISEASE
     Route: 050
     Dates: start: 20171115, end: 20180309
  2. DUODOPA [Suspect]
     Active Substance: CARBIDOPA\LEVODOPA
     Dosage: MD: 6ML; CONTINUOUS RATE DAY 4ML; CONTINUOUS RATE NIGHT 2ML; ED: 1?24H THERAPY
     Route: 050
     Dates: start: 20180309, end: 20180504
  3. DUODOPA [Suspect]
     Active Substance: CARBIDOPA\LEVODOPA
     Dosage: MD: 6ML; CONTINUOUS RATE DAY 3.9ML; CONTINUOUS RATE NIGHT 2ML; ED: 1?24H THERAPY
     Route: 050
     Dates: start: 20180504

REACTIONS (4)
  - Urinary tract infection [Unknown]
  - Disorientation [Unknown]
  - Prostate infection [Unknown]
  - Device difficult to use [Recovered/Resolved]

NARRATIVE: CASE EVENT DATE: 20180525
